FAERS Safety Report 4927627-2 (Version None)
Quarter: 2006Q1

REPORT INFORMATION
  Report Type: 
  Country: None (occurrence: None)
  Receive Date: 20060228
  Receipt Date: 20051025
  Transmission Date: 20060701
  Serious: Yes (Hospitalization, Other)
  Sender: FDA-Public Use
  Company Number: PR-MERCK-0510USA09013

PATIENT
  Age: 51 Year
  Sex: Male

DRUGS (4)
  1. VIOXX [Suspect]
     Indication: OSTEOARTHRITIS
     Route: 048
     Dates: start: 19990601, end: 19991101
  2. VIOXX [Suspect]
     Route: 048
     Dates: start: 20000101, end: 20001001
  3. VIOXX [Suspect]
     Indication: NEUROPATHY PERIPHERAL
     Route: 048
     Dates: start: 19990601, end: 19991101
  4. VIOXX [Suspect]
     Route: 048
     Dates: start: 20000101, end: 20001001

REACTIONS (10)
  - CELLULITIS [None]
  - CORONARY ARTERY DISEASE [None]
  - DIABETES MELLITUS NON-INSULIN-DEPENDENT [None]
  - HYPERLIPIDAEMIA [None]
  - HYPERTENSION [None]
  - OVERDOSE [None]
  - PLEURAL EFFUSION [None]
  - PYREXIA [None]
  - SCHIZOPHRENIA [None]
  - TINEA PEDIS [None]
